FAERS Safety Report 8920104 (Version 2)
Quarter: 2013Q1

REPORT INFORMATION
  Report Type: Spontaneous
  Country: US (occurrence: US)
  Receive Date: 20121121
  Receipt Date: 20130226
  Transmission Date: 20140127
  Serious: Yes (Hospitalization, Other)
  Sender: FDA-Public Use
  Company Number: US-AMGEN-USASP2012073914

PATIENT
  Age: 85 Year
  Sex: Male
  Weight: 81.63 kg

DRUGS (1)
  1. PROCRIT [Suspect]
     Indication: ANAEMIA
     Dosage: 50000 UNIT, AS NEEDED
     Route: 058
     Dates: start: 200307

REACTIONS (4)
  - Surgery [Recovered/Resolved]
  - Body height decreased [Not Recovered/Not Resolved]
  - Abnormal loss of weight [Not Recovered/Not Resolved]
  - Hiatus hernia [Unknown]
